FAERS Safety Report 5370501-0 (Version None)
Quarter: 2007Q2

REPORT INFORMATION
  Report Type: 
  Country: None (occurrence: None)
  Receive Date: 20070626
  Receipt Date: 20070620
  Transmission Date: 20071010
  Serious: Yes (Hospitalization)
  Sender: FDA-Public Use
  Company Number: SE-ASTRAZENECA-2007SE03606

PATIENT
  Age: 37 Year
  Sex: Female

DRUGS (1)
  1. ZOLADEX [Suspect]
     Indication: BREAST CANCER FEMALE
     Dates: start: 20060130, end: 20070104

REACTIONS (2)
  - EPILEPSY [None]
  - SUBARACHNOID HAEMORRHAGE [None]
